FAERS Safety Report 6012474-3 (Version None)
Quarter: 2008Q4

REPORT INFORMATION
  Report Type: 
  Country: None (occurrence: None)
  Receive Date: 20081218
  Receipt Date: 20081209
  Transmission Date: 20090506
  Serious: Yes (Death)
  Sender: FDA-Public Use
  Company Number: US-GENENTECH-273682

PATIENT
  Sex: Male
  Weight: 89.342 kg

DRUGS (3)
  1. BEVACIZUMAB [Suspect]
     Indication: URETERIC CANCER
     Dosage: 1500 MG, Q21D
     Route: 042
     Dates: start: 20080522, end: 20081124
  2. GEMZAR [Suspect]
     Indication: URETERIC CANCER
     Dosage: 1650 MG, UNK
     Route: 042
     Dates: start: 20080522, end: 20081124
  3. CISPLATIN [Suspect]
     Indication: URETERIC CANCER
     Dosage: 155 MG, Q21D
     Route: 042
     Dates: start: 20080522, end: 20081124

REACTIONS (1)
  - CARDIAC ARREST [None]
